FAERS Safety Report 6411672-4 (Version None)
Quarter: 2009Q4

REPORT INFORMATION
  Report Type: 
  Country: None (occurrence: None)
  Receive Date: 20091023
  Receipt Date: 20091016
  Transmission Date: 20100525
  Serious: Yes (Other)
  Sender: FDA-Public Use
  Company Number: CA-ROCHE-662870

PATIENT
  Age: 72 Year
  Sex: Female

DRUGS (4)
  1. CLONAZEPAM [Suspect]
     Indication: DRUG USE FOR UNKNOWN INDICATION
     Route: 065
  2. CLOZARIL [Suspect]
     Indication: DRUG USE FOR UNKNOWN INDICATION
     Route: 048
  3. CELEXA [Concomitant]
  4. ATIVAN [Concomitant]

REACTIONS (5)
  - DEPRESSED LEVEL OF CONSCIOUSNESS [None]
  - DRUG INEFFECTIVE [None]
  - HYPOXIA [None]
  - TACHYCARDIA [None]
  - TACHYPNOEA [None]
